FAERS Safety Report 6466037-6 (Version None)
Quarter: 2009Q4

REPORT INFORMATION
  Report Type: 
  Country: None (occurrence: None)
  Receive Date: 20091202
  Receipt Date: 20091123
  Transmission Date: 20100525
  Serious: No
  Sender: FDA-Public Use
  Company Number: US-JNJFOC-20091107040

PATIENT
  Sex: Female
  Weight: 63.5 kg

DRUGS (2)
  1. FENTANYL CITRATE [Suspect]
     Indication: HEADACHE
     Dosage: NDC#: 0781-7111-55
     Route: 062
     Dates: start: 20070101
  2. FENTANYL CITRATE [Suspect]
     Indication: HEADACHE
     Route: 062

REACTIONS (2)
  - PRODUCT ADHESION ISSUE [None]
  - WRONG TECHNIQUE IN DRUG USAGE PROCESS [None]
